FAERS Safety Report 4629198-7 (Version None)
Quarter: 2005Q2

REPORT INFORMATION
  Report Type: 
  Country: None (occurrence: None)
  Receive Date: 20050404
  Receipt Date: 20050404
  Transmission Date: 20051028
  Serious: Yes (Other)
  Sender: FDA-Public Use
  Company Number: None

PATIENT
  Sex: Female
  Weight: 72 kg

DRUGS (2)
  1. ZESTRIL [Suspect]
     Indication: CARDIAC FAILURE
     Dosage: 40 MG ORALLY 1 DAILY
     Route: 048
  2. ZESTRIL [Suspect]
     Indication: HYPERTENSION
     Dosage: 40 MG ORALLY 1 DAILY
     Route: 048

REACTIONS (2)
  - DRUG INTOLERANCE [None]
  - PHARMACEUTICAL PRODUCT COMPLAINT [None]
